FAERS Safety Report 5208413-5 (Version None)
Quarter: 2007Q1

REPORT INFORMATION
  Report Type: 
  Country: None (occurrence: None)
  Receive Date: 20070115
  Receipt Date: 20070103
  Transmission Date: 20070707
  Serious: Yes (Life-Threatening, Other)
  Sender: FDA-Public Use
  Company Number: FR-SHR-FR-2007-000366

PATIENT
  Age: 64 Year
  Sex: Male
  Weight: 84 kg

DRUGS (5)
  1. FLUDARA 50 MG (SH L 573 A) [Suspect]
     Route: 042
     Dates: start: 20060524, end: 20060528
  2. BUSULFAN [Suspect]
     Indication: STEM CELL TRANSPLANT
     Route: 042
     Dates: start: 20060527, end: 20060528
  3. THYMOGLOBULINE                          /FRA/ [Concomitant]
     Route: 042
     Dates: start: 20060523, end: 20060530
  4. ONDANSETRON [Concomitant]
     Route: 042
     Dates: start: 20060524, end: 20060530
  5. ZELITREX                                /DEN/ [Concomitant]

REACTIONS (1)
  - HEPATITIS FULMINANT [None]
